FAERS Safety Report 16388157 (Version 1)
Quarter: 2019Q2

REPORT INFORMATION
  Report Type: Spontaneous
  Country: US (occurrence: US)
  Receive Date: 20190429
  Receipt Date: 20190429
  Transmission Date: 20190711
  Serious: No
  Sender: FDA-Public Use
  Company Number: None

PATIENT
  Age: 77 Year
  Sex: Female
  Weight: 50.8 kg

DRUGS (2)
  1. COSENTYX [Suspect]
     Active Substance: SECUKINUMAB
     Indication: OSTEOPOROSIS
     Dosage: INJECT 150MG (1 PEN) SUBCUTANEOUSLY ONCE A  WEEK AT WEEKS 2,3 AND 4  AS DIRECTED
     Route: 058
     Dates: start: 201810
  2. COSENTYX [Suspect]
     Active Substance: SECUKINUMAB
     Indication: RHEUMATOID ARTHRITIS
     Dosage: INJECT 150MG (1 PEN) SUBCUTANEOUSLY ONCE A  WEEK AT WEEKS 2,3 AND 4  AS DIRECTED
     Route: 058
     Dates: start: 201810

REACTIONS (2)
  - Pruritus generalised [None]
  - Joint swelling [None]
